FAERS Safety Report 23986639 (Version 2)
Quarter: 2024Q3

REPORT INFORMATION
  Report Type: Spontaneous
  Country: US (occurrence: US)
  Receive Date: 20240618
  Receipt Date: 20240726
  Transmission Date: 20241017
  Serious: Yes (Hospitalization)
  Sender: JOHNSON AND JOHNSON
  Company Number: US-JNJFOC-20240641652

PATIENT
  Age: 46 Year
  Sex: Male

DRUGS (2)
  1. SPRAVATO [Suspect]
     Active Substance: ESKETAMINE
     Indication: Post-traumatic stress disorder
     Dosage: PATIENT STARTED 2 SEPARATE FOR EACH NOSTRIL, THEN WANTED TO 3X.
     Dates: start: 20231024, end: 20231122
  2. CYMBALTA [Concomitant]
     Active Substance: DULOXETINE HYDROCHLORIDE
     Indication: Anxiety
     Route: 065
     Dates: start: 20210710, end: 20240302

REACTIONS (6)
  - Hospitalisation [Unknown]
  - Lymphoedema [Unknown]
  - Hepatic steatosis [Unknown]
  - Alcohol abuse [Unknown]
  - Off label use [Unknown]
  - Weight increased [Unknown]

NARRATIVE: CASE EVENT DATE: 20240624
